APPROVED DRUG PRODUCT: MORPHINE SULFATE
Active Ingredient: MORPHINE SULFATE
Strength: 0.5MG/ML
Dosage Form/Route: INJECTABLE;INJECTION
Application: A071849 | Product #001
Applicant: HOSPIRA INC
Approved: May 11, 1988 | RLD: No | RS: No | Type: DISCN